FAERS Safety Report 8923132 (Version 1)
Quarter: 2012Q4

REPORT INFORMATION
  Report Type: Spontaneous
  Country: US (occurrence: None)
  Receive Date: 20121115
  Receipt Date: 20121115
  Transmission Date: 20130627
  Serious: Yes (Other)
  Sender: FDA-Public Use
  Company Number: ADE12-091

PATIENT
  Age: 2 Year
  Sex: Male
  Weight: 14 kg

DRUGS (2)
  1. ROCURONIUM BROMIDE [Suspect]
     Indication: LARYNGOSPASM
     Route: 042
     Dates: start: 20121106, end: 20121106
  2. PROPOFOL [Concomitant]

REACTIONS (2)
  - Drug ineffective [None]
  - Product quality issue [None]
